FAERS Safety Report 4526452-4 (Version None)
Quarter: 2004Q4

REPORT INFORMATION
  Report Type: 
  Country: None (occurrence: None)
  Receive Date: 20041210
  Receipt Date: 20041202
  Transmission Date: 20050328
  Serious: Yes (Death)
  Sender: FDA-Public Use
  Company Number: 200410621BFR

PATIENT
  Age: 73 Year
  Sex: Male

DRUGS (5)
  1. CIPROFLOXACIN HCL [Suspect]
     Indication: PYREXIA
     Dosage: 1500 MG, TOTAL DAILY, ORAL
     Route: 048
     Dates: start: 20041115, end: 20041116
  2. ACETAMINOPHEN [Suspect]
     Indication: PYREXIA
     Dosage: ORAL
     Route: 048
     Dates: start: 20041113, end: 20041116
  3. PREVISCAN (FLUINDIONE) [Suspect]
     Dosage: 20 MG, TOTAL DAILY, ORAL
     Route: 048
     Dates: start: 20030701, end: 20041116
  4. PLAVIX [Suspect]
     Dates: start: 20030701, end: 20041116
  5. MODOPAR [Concomitant]

REACTIONS (8)
  - BLINDNESS CORTICAL [None]
  - CEREBRAL HAEMATOMA [None]
  - CEREBRAL HAEMORRHAGE [None]
  - DEPRESSED LEVEL OF CONSCIOUSNESS [None]
  - DRUG INTERACTION [None]
  - PROTHROMBIN LEVEL DECREASED [None]
  - PUPILS UNEQUAL [None]
  - PYREXIA [None]
